FAERS Safety Report 17228411 (Version 1)
Quarter: 2020Q1

REPORT INFORMATION
  Report Type: Spontaneous
  Country: SE (occurrence: SE)
  Receive Date: 20200103
  Receipt Date: 20200103
  Transmission Date: 20200409
  Serious: Yes (Hospitalization)
  Sender: FDA-Public Use
  Company Number: SE-TEVA-2019-SE-1160938

PATIENT
  Age: 50 Year
  Sex: Female

DRUGS (4)
  1. OXASCAND [Suspect]
     Active Substance: OXAZEPAM
     Dosage: 120 MG
     Route: 048
     Dates: start: 20190211, end: 20190211
  2. PROPAVAN [Suspect]
     Active Substance: PROPIOMAZINE
     Dosage: 10 DOSAGE FORMS
     Route: 048
     Dates: start: 20190211, end: 20190211
  3. THERALEN [Suspect]
     Active Substance: TRIMEPRAZINE
     Dosage: 1 ML
     Route: 048
     Dates: start: 20190211, end: 20190211
  4. ZOPICLONE [Suspect]
     Active Substance: ZOPICLONE
     Dosage: 97.5 MG
     Route: 048
     Dates: start: 20190211, end: 20190211

REACTIONS (2)
  - Intentional overdose [Unknown]
  - Intentional self-injury [Unknown]

NARRATIVE: CASE EVENT DATE: 20190211
